FAERS Safety Report 4753843-9 (Version None)
Quarter: 2005Q3

REPORT INFORMATION
  Report Type: 
  Country: None (occurrence: None)
  Receive Date: 20050826
  Receipt Date: 20050824
  Transmission Date: 20060218
  Serious: Yes (Hospitalization)
  Sender: FDA-Public Use
  Company Number: US-GLAXOSMITHKLINE-A0571669A

PATIENT
  Age: 7 Year
  Sex: Male

DRUGS (7)
  1. LAMICTAL [Suspect]
     Indication: EPILEPSY
     Dosage: 375MG PER DAY
     Route: 048
     Dates: start: 20040801
  2. NADOLOL [Concomitant]
  3. FLUDROCORTISONE [Concomitant]
  4. PRILOSEC [Concomitant]
  5. UNSPECIFIED MEDICATION [Concomitant]
  6. UNSPECIFIED MEDICATION [Concomitant]
  7. CYPROHEPTADINE HCL [Concomitant]

REACTIONS (10)
  - BLOOD PRESSURE INCREASED [None]
  - CONSTIPATION [None]
  - CONVULSION [None]
  - DEHYDRATION [None]
  - FATIGUE [None]
  - HEART RATE DECREASED [None]
  - INCOHERENT [None]
  - NAUSEA [None]
  - RETCHING [None]
  - VOMITING [None]
